FAERS Safety Report 10082421 (Version 1)
Quarter: 2014Q2

REPORT INFORMATION
  Report Type: Report from Study
  Country: JP (occurrence: JP)
  Receive Date: 20140416
  Receipt Date: 20140416
  Transmission Date: 20141212
  Serious: Yes (Hospitalization)
  Sender: FDA-Public Use
  Company Number: JP-EISAI INC-E2020-13903-SOL-JP

PATIENT
  Age: 89 Year
  Sex: Female

DRUGS (7)
  1. ARICEPT [Suspect]
     Indication: DEMENTIA ALZHEIMER^S TYPE
     Route: 048
     Dates: start: 20110201, end: 20130521
  2. ARICEPT [Suspect]
     Route: 048
     Dates: start: 20130606
  3. PLAVIX [Concomitant]
  4. MAGMITT [Concomitant]
  5. CRAVIT [Concomitant]
  6. MASHININGAN [Concomitant]
  7. PURSENNID [Concomitant]

REACTIONS (1)
  - Altered state of consciousness [Recovered/Resolved]
